FAERS Safety Report 8016262-8 (Version None)
Quarter: 2011Q4

REPORT INFORMATION
  Report Type: 
  Country: None (occurrence: None)
  Receive Date: 20111230
  Receipt Date: 20111219
  Transmission Date: 20120403
  Serious: Yes (Hospitalization)
  Sender: FDA-Public Use
  Company Number: JP-MERCK-1112USA02702

PATIENT
  Age: 59 Year
  Sex: Male

DRUGS (3)
  1. VITANEURIN (FURSULTIAMINE (+) HYDROXOCOBALAMIN ACETATE (+) PYRIDOXAL P [Suspect]
     Route: 048
  2. HYZAAR [Suspect]
     Indication: HYPERTENSION
     Route: 065
     Dates: start: 20080201, end: 20110501
  3. NORVASC [Suspect]
     Route: 048

REACTIONS (2)
  - HYPOKALAEMIA [None]
  - SUDDEN HEARING LOSS [None]
